FAERS Safety Report 7199199-6 (Version None)
Quarter: 2010Q4

REPORT INFORMATION
  Report Type: 
  Country: None (occurrence: None)
  Receive Date: 20101228
  Receipt Date: 20101216
  Transmission Date: 20110411
  Serious: Yes (Hospitalization)
  Sender: FDA-Public Use
  Company Number: PHHY2010US86534

PATIENT
  Age: 32 Year
  Sex: Female

DRUGS (3)
  1. EXTAVIA [Suspect]
     Indication: MULTIPLE SCLEROSIS
     Dosage: 0.25 MG, QOD
     Route: 058
     Dates: start: 20101130
  2. GABAPENTIN [Concomitant]
     Dosage: 300 MG, BID
  3. MOTRIN [Concomitant]

REACTIONS (2)
  - BLADDER SPASM [None]
  - NEPHROLITHIASIS [None]
